FAERS Safety Report 4648920-7 (Version None)
Quarter: 2005Q2

REPORT INFORMATION
  Report Type: 
  Country: None (occurrence: None)
  Receive Date: 20050427
  Receipt Date: 20050408
  Transmission Date: 20051028
  Serious: Yes (Other)
  Sender: FDA-Public Use
  Company Number: USA050495375

PATIENT
  Age: 76 Year
  Sex: Female

DRUGS (1)
  1. FORTEO [Suspect]
     Dosage: 20 UG DAY
     Dates: start: 20040921

REACTIONS (3)
  - BONE PAIN [None]
  - METASTASES TO BONE [None]
  - METASTATIC NEOPLASM [None]
